FAERS Safety Report 16692916 (Version 2)
Quarter: 2021Q2

REPORT INFORMATION
  Report Type: Spontaneous
  Country: US (occurrence: US)
  Receive Date: 20190812
  Receipt Date: 20210407
  Transmission Date: 20210716
  Serious: Yes (Other)
  Sender: FDA-Public Use
  Company Number: US-PFIZER INC-2019344290

PATIENT
  Sex: Female

DRUGS (1)
  1. LORBRENA [Suspect]
     Active Substance: LORLATINIB
     Indication: NON-SMALL CELL LUNG CANCER
     Dosage: UNK, 2X/DAY (WITH OR WITHOUT FOOD)
     Route: 048

REACTIONS (4)
  - Off label use [Unknown]
  - Weight increased [Unknown]
  - Blood cholesterol increased [Unknown]
  - Neuropathy peripheral [Unknown]
